FAERS Safety Report 11981103 (Version 2)
Quarter: 2016Q1

REPORT INFORMATION
  Report Type: Report from Study
  Country: BR (occurrence: BR)
  Receive Date: 20160129
  Receipt Date: 20160310
  Transmission Date: 20160526
  Serious: Yes (Other)
  Sender: FDA-Public Use
  Company Number: BR-ABBVIE-16P-020-1550064-00

PATIENT
  Age: 53 Year
  Sex: Male
  Weight: 90 kg

DRUGS (6)
  1. OMEPRAZOLE. [Concomitant]
     Active Substance: OMEPRAZOLE
     Indication: GASTROOESOPHAGEAL REFLUX DISEASE
     Dosage: 2 TABLETS IN FASTING
     Route: 048
     Dates: start: 2010
  2. COMBODART [Concomitant]
     Active Substance: DUTASTERIDE\TAMSULOSIN
     Indication: PROSTATIC DISORDER
     Route: 048
     Dates: start: 2015
  3. LIPIDIL [Suspect]
     Active Substance: FENOFIBRATE
     Indication: BLOOD CHOLESTEROL ABNORMAL
     Dosage: 1 TABLET AFTER DINNER
     Route: 048
     Dates: start: 201509, end: 20160114
  4. LIPIDIL [Suspect]
     Active Substance: FENOFIBRATE
     Dosage: 1 TABLET AFTER DINNER
     Route: 048
     Dates: start: 20160116, end: 20160116
  5. LIPNOL [Concomitant]
     Indication: BLOOD URIC ACID ABNORMAL
     Dosage: 1 TABLET AFTER LUNCH
     Route: 048
     Dates: start: 2015, end: 201512
  6. BENICAR [Concomitant]
     Active Substance: OLMESARTAN MEDOXOMIL
     Indication: BLOOD PRESSURE ABNORMAL
     Route: 048
     Dates: start: 2013

REACTIONS (10)
  - Dysgeusia [Recovered/Resolved]
  - Dyspepsia [Recovered/Resolved]
  - Therapy cessation [Unknown]
  - Abdominal rigidity [Recovered/Resolved]
  - Urinary tract infection [Recovered/Resolved]
  - Abdominal distension [Recovered/Resolved]
  - Nephrolithiasis [Recovered/Resolved]
  - Vomiting [Recovered/Resolved]
  - Pyonephrosis [Unknown]
  - Abdominal pain upper [Recovered/Resolved]

NARRATIVE: CASE EVENT DATE: 201512
